FAERS Safety Report 4828601-7 (Version None)
Quarter: 2005Q4

REPORT INFORMATION
  Report Type: 
  Country: None (occurrence: None)
  Receive Date: 20051115
  Receipt Date: 20050929
  Transmission Date: 20060501
  Serious: Yes (Hospitalization, Other)
  Sender: FDA-Public Use
  Company Number: PHEH2005US10886

PATIENT
  Age: 41 Year
  Sex: Female
  Weight: 67 kg

DRUGS (3)
  1. CLOZARIL [Suspect]
     Indication: SCHIZOAFFECTIVE DISORDER
     Dosage: UNK, UNK
  2. ACYCLOVIR [Concomitant]
     Indication: HERPES SIMPLEX SEROLOGY POSITIVE
     Dosage: 400 MG, BID
     Route: 048
     Dates: start: 20050801, end: 20050927
  3. PRENATAL VITAMINS [Concomitant]
     Indication: PREGNANCY

REACTIONS (7)
  - CAESAREAN SECTION [None]
  - CHORIOAMNIONITIS [None]
  - DRUG EXPOSURE DURING PREGNANCY [None]
  - GRANULOCYTE COUNT INCREASED [None]
  - NEUTROPHIL PERCENTAGE INCREASED [None]
  - PREMATURE RUPTURE OF MEMBRANES [None]
  - WHITE BLOOD CELL COUNT INCREASED [None]
